FAERS Safety Report 18980081 (Version 1)
Quarter: 2021Q1

REPORT INFORMATION
  Report Type: Report from Study
  Country: US (occurrence: US)
  Receive Date: 20210308
  Receipt Date: 20210308
  Transmission Date: 20210420
  Serious: Yes (Other)
  Sender: FDA-Public Use
  Company Number: NVSC2021US045486

PATIENT
  Age: 56 Year
  Sex: Female

DRUGS (1)
  1. COSENTYX [Suspect]
     Active Substance: SECUKINUMAB
     Indication: PSORIASIS
     Dosage: UNK
     Route: 058

REACTIONS (7)
  - Pneumonia [Unknown]
  - Cystitis [Unknown]
  - Skin lesion [Not Recovered/Not Resolved]
  - Hypotension [Unknown]
  - Contusion [Unknown]
  - Syncope [Unknown]
  - Intentional self-injury [Unknown]
